FAERS Safety Report 6743495-0 (Version None)
Quarter: 2010Q2

REPORT INFORMATION
  Report Type: 
  Country: None (occurrence: None)
  Receive Date: 20100526
  Receipt Date: 20100526
  Transmission Date: 20101027
  Serious: No
  Sender: FDA-Public Use
  Company Number: None

PATIENT
  Sex: Male
  Weight: 102 kg

DRUGS (1)
  1. GAMMAGARD LIQUID [Suspect]
     Indication: MYASTHENIA GRAVIS
     Dosage: 50GM Q 2 WEEKS IV
     Route: 042
     Dates: start: 20100510

REACTIONS (3)
  - PRURITUS [None]
  - RASH [None]
  - URTICARIA [None]
